FAERS Safety Report 5736993-X (Version None)
Quarter: 2008Q2

REPORT INFORMATION
  Report Type: 
  Country: None (occurrence: None)
  Receive Date: 20080513
  Receipt Date: 20080513
  Transmission Date: 20081010
  Serious: Yes (Other)
  Sender: FDA-Public Use
  Company Number: None

PATIENT
  Sex: Female
  Weight: 90.7194 kg

DRUGS (4)
  1. LAMICTAL [Suspect]
     Indication: BIPOLAR DISORDER
     Dosage: 25 MG/DAY 1X/DAY - 5 WEEKS PO, 50 MG/DAY 1X DAY @ WEEK 6 PO
     Route: 048
     Dates: start: 20080324, end: 20080425
  2. LAMICTAL [Suspect]
     Indication: MOOD SWINGS
     Dosage: 25 MG/DAY 1X/DAY - 5 WEEKS PO, 50 MG/DAY 1X DAY @ WEEK 6 PO
     Route: 048
     Dates: start: 20080324, end: 20080425
  3. LAMICTAL [Suspect]
     Indication: BIPOLAR DISORDER
     Dosage: 25 MG/DAY 1X/DAY - 5 WEEKS PO, 50 MG/DAY 1X DAY @ WEEK 6 PO
     Route: 048
     Dates: start: 20080426, end: 20080504
  4. LAMICTAL [Suspect]
     Indication: MOOD SWINGS
     Dosage: 25 MG/DAY 1X/DAY - 5 WEEKS PO, 50 MG/DAY 1X DAY @ WEEK 6 PO
     Route: 048
     Dates: start: 20080426, end: 20080504

REACTIONS (3)
  - HYPERSENSITIVITY [None]
  - RASH ERYTHEMATOUS [None]
  - RASH PRURITIC [None]
